FAERS Safety Report 7747577-6 (Version None)
Quarter: 2011Q3

REPORT INFORMATION
  Report Type: 
  Country: None (occurrence: None)
  Receive Date: 20110913
  Receipt Date: 20110831
  Transmission Date: 20111222
  Serious: Yes (Other)
  Sender: FDA-Public Use
  Company Number: CA-ELI_LILLY_AND_COMPANY-CA201108009411

PATIENT
  Sex: Female

DRUGS (6)
  1. ZYPREXA [Suspect]
     Dosage: 2.5 MG, EACH EVENING
  2. ABILIFY [Concomitant]
  3. RAMIPRIL [Concomitant]
  4. ZYPREXA [Suspect]
     Indication: SCHIZOPHRENIA, PARANOID TYPE
     Dosage: 7.5 MG, EACH EVENING
     Dates: start: 20020206, end: 20100928
  5. RISPERIDONE [Concomitant]
  6. CELEXA [Concomitant]

REACTIONS (4)
  - DIABETES MELLITUS [None]
  - BLOOD TRIGLYCERIDES INCREASED [None]
  - RENAL FAILURE [None]
  - BLOOD CHOLESTEROL INCREASED [None]
